FAERS Safety Report 6507793-8 (Version None)
Quarter: 2009Q4

REPORT INFORMATION
  Report Type: 
  Country: None (occurrence: None)
  Receive Date: 20091221
  Receipt Date: 20091207
  Transmission Date: 20100525
  Serious: Yes (Life-Threatening, Hospitalization, Disabling, Other)
  Sender: FDA-Public Use
  Company Number: GB-MERCK-0711GBR00031

PATIENT
  Age: 80 Year
  Sex: Male
  Weight: 55 kg

DRUGS (8)
  1. ZOCOR [Suspect]
     Route: 048
     Dates: start: 20050401, end: 20051121
  2. ERYTHROMYCIN [Suspect]
     Route: 048
     Dates: start: 20051025, end: 20051121
  3. BUMETANIDE [Concomitant]
     Route: 048
  4. BISOPROLOL FUMARATE [Concomitant]
     Route: 048
  5. DIGOXIN [Concomitant]
     Route: 048
  6. LANSOPRAZOLE [Concomitant]
     Route: 048
  7. TRAMADOL HYDROCHLORIDE [Concomitant]
     Route: 048
  8. WARFARIN [Concomitant]
     Route: 048

REACTIONS (7)
  - ABASIA [None]
  - ASPARTATE AMINOTRANSFERASE INCREASED [None]
  - DRUG INTERACTION [None]
  - MYALGIA [None]
  - MYOGLOBINURIA [None]
  - RENAL FAILURE [None]
  - RHABDOMYOLYSIS [None]
